APPROVED DRUG PRODUCT: PEDIAPRED
Active Ingredient: PREDNISOLONE SODIUM PHOSPHATE
Strength: EQ 5MG BASE/5ML
Dosage Form/Route: SOLUTION;ORAL
Application: N019157 | Product #001 | TE Code: AA
Applicant: SETON PHARMACEUTICAL LLC
Approved: May 28, 1986 | RLD: Yes | RS: Yes | Type: RX